FAERS Safety Report 12904882 (Version 8)
Quarter: 2017Q1

REPORT INFORMATION
  Report Type: Spontaneous
  Country: US (occurrence: US)
  Receive Date: 20161102
  Receipt Date: 20170328
  Transmission Date: 20170428
  Serious: No
  Sender: FDA-Public Use
  Company Number: US-ACTELION-A-US2016-144914

PATIENT
  Age: 58 Year
  Sex: Female
  Weight: 53.6 kg

DRUGS (7)
  1. ADCIRCA [Concomitant]
     Active Substance: TADALAFIL
  2. UPTRAVI [Suspect]
     Active Substance: SELEXIPAG
     Indication: PULMONARY ARTERIAL HYPERTENSION
     Dosage: 400 MCG, UNK
     Route: 048
     Dates: start: 20161020, end: 20170318
  3. UPTRAVI [Suspect]
     Active Substance: SELEXIPAG
     Dosage: 400 MCG, BID
     Route: 048
  4. TYVASO [Suspect]
     Active Substance: TREPROSTINIL
     Indication: PULMONARY ARTERIAL HYPERTENSION
     Dosage: 54-84 MCG, QID
     Route: 055
     Dates: start: 20101116
  5. TYVASO [Suspect]
     Active Substance: TREPROSTINIL
     Dosage: 18-54 MCG, QID
     Route: 055
     Dates: start: 20170319
  6. AMBRISENTAN [Suspect]
     Active Substance: AMBRISENTAN
     Indication: PRODUCT USED FOR UNKNOWN INDICATION
     Dosage: 10 MG, QD
     Route: 065
     Dates: start: 20140211
  7. UPTRAVI [Suspect]
     Active Substance: SELEXIPAG
     Dosage: 200 MCG, BID
     Route: 048

REACTIONS (15)
  - Back pain [Unknown]
  - Bone pain [Unknown]
  - Nausea [Unknown]
  - Pain in extremity [Unknown]
  - Headache [Unknown]
  - Pain in jaw [Unknown]
  - Dyspnoea [Unknown]
  - Drug dose omission [Unknown]
  - Diarrhoea [Unknown]
  - Pain [Unknown]
  - Crying [Unknown]
  - Musculoskeletal pain [Unknown]
  - Abdominal pain upper [Unknown]
  - Gait disturbance [Unknown]
  - Vomiting [Unknown]

NARRATIVE: CASE EVENT DATE: 20161020
